FAERS Safety Report 4288731-8 (Version None)
Quarter: 2004Q1

REPORT INFORMATION
  Report Type: 
  Country: None (occurrence: None)
  Receive Date: 20040205
  Receipt Date: 20040122
  Transmission Date: 20041129
  Serious: Yes (Hospitalization)
  Sender: FDA-Public Use
  Company Number: 2004CG00129

PATIENT
  Age: 66 Year
  Sex: Female

DRUGS (15)
  1. NEXIUM [Suspect]
     Dosage: 1 DF DAILY PO
     Route: 048
     Dates: start: 20031010, end: 20031217
  2. ONCOVIN [Suspect]
     Indication: LIGHT CHAIN DISEASE
     Dates: start: 20031020
  3. ONCOVIN [Suspect]
     Indication: MULTIPLE MYELOMA
     Dates: start: 20031020
  4. ONCOVIN [Suspect]
     Indication: LIGHT CHAIN DISEASE
     Dates: start: 20031127
  5. ONCOVIN [Suspect]
     Indication: MULTIPLE MYELOMA
     Dates: start: 20031127
  6. ONCOVIN [Suspect]
     Indication: LIGHT CHAIN DISEASE
     Dates: start: 20031223
  7. ONCOVIN [Suspect]
     Indication: MULTIPLE MYELOMA
     Dates: start: 20031223
  8. ZOPHREN [Suspect]
     Dates: start: 20031020
  9. ZOPHREN [Suspect]
     Dates: start: 20031127
  10. ZOPHREN [Suspect]
     Dates: start: 20031223
  11. EUCALCIC [Concomitant]
  12. ADRIAMYCIN PFS [Concomitant]
  13. DEXAMETHASONE [Concomitant]
  14. ENDOXAN [Concomitant]
  15. PREDNISONE [Concomitant]

REACTIONS (2)
  - ERYTHEMA MULTIFORME [None]
  - SKIN DESQUAMATION [None]
